FAERS Safety Report 14034914 (Version 1)
Quarter: 2017Q4

REPORT INFORMATION
  Report Type: Spontaneous
  Country: GB (occurrence: GB)
  Receive Date: 20171003
  Receipt Date: 20171003
  Transmission Date: 20180321
  Serious: Yes (Other)
  Sender: FDA-Public Use
  Company Number: GB-TEVA-810796ACC

PATIENT
  Age: 73 Year
  Sex: Female
  Weight: 67 kg

DRUGS (7)
  1. OMEPRAZOLE. [Concomitant]
     Active Substance: OMEPRAZOLE
     Dosage: 1 DOSAGE FORMS DAILY;
     Dates: start: 20161205
  2. FOSFOMYCIN [Concomitant]
     Active Substance: FOSFOMYCIN
     Dosage: USE AS DIRECTED
     Dates: start: 20170912
  3. CO-AMOXICLAV [Concomitant]
     Active Substance: AMOXICILLIN\CLAVULANIC ACID
     Dosage: 3 DOSAGE FORMS DAILY;
     Dates: start: 20170706, end: 20170713
  4. AMOXICILLIN. [Concomitant]
     Active Substance: AMOXICILLIN
     Dosage: 3 DOSAGE FORMS DAILY;
     Dates: start: 20170620, end: 20170627
  5. CEFALEXIN [Concomitant]
     Active Substance: CEPHALEXIN
     Dosage: 4 DOSAGE FORMS DAILY;
     Dates: start: 20160627
  6. TRIMETHOPRIM. [Suspect]
     Active Substance: TRIMETHOPRIM
     Dates: start: 20170912
  7. COCODAMOL [Concomitant]
     Active Substance: ACETAMINOPHEN\CODEINE PHOSPHATE
     Dosage: 8 DOSAGE FORMS DAILY;
     Dates: start: 20160627

REACTIONS (2)
  - Malaise [Unknown]
  - Dyspnoea [Recovered/Resolved]

NARRATIVE: CASE EVENT DATE: 20170912
